FAERS Safety Report 8970406 (Version 1)
Quarter: 2012Q4

REPORT INFORMATION
  Report Type: 
  Country: DE (occurrence: DE)
  Receive Date: 20121217
  Receipt Date: 20121217
  Transmission Date: 20130627
  Serious: Yes (Other)
  Sender: FDA-Public Use
  Company Number: DE-ROCHE-1145984

PATIENT
  Age: 46 Year
  Sex: Female
  Weight: 87 kg

DRUGS (6)
  1. AVASTIN [Suspect]
     Indication: OVARIAN CANCER
     Route: 042
     Dates: start: 20111104, end: 20120802
  2. PACLITAXEL [Concomitant]
     Indication: OVARIAN CANCER
     Route: 042
     Dates: start: 20111104, end: 20120216
  3. CARBOPLATIN [Concomitant]
     Indication: OVARIAN CANCER
     Route: 042
     Dates: start: 20111104, end: 20120216
  4. FORTECORTIN [Concomitant]
     Route: 042
     Dates: start: 20111104, end: 20120216
  5. TAVEGIL [Concomitant]
     Route: 042
     Dates: start: 20111104, end: 20120216
  6. PALONOSETRON [Concomitant]

REACTIONS (2)
  - Proteinuria [Recovering/Resolving]
  - Ovarian cancer [Unknown]
